FAERS Safety Report 8848702 (Version 1)
Quarter: 2012Q4

REPORT INFORMATION
  Report Type: Spontaneous
  Country: US (occurrence: None)
  Receive Date: 20121017
  Receipt Date: 20121017
  Transmission Date: 20130627
  Serious: No
  Sender: FDA-Public Use
  Company Number: None

PATIENT
  Age: 56 Year
  Sex: Female
  Weight: 63.5 kg

DRUGS (1)
  1. PROPRANOLOL ER 60 MG [Suspect]
     Indication: MIGRAINE
     Route: 048
     Dates: start: 20120917, end: 20121003

REACTIONS (18)
  - Insomnia [None]
  - Tobacco user [None]
  - Depression [None]
  - Rash pruritic [None]
  - Syncope [None]
  - Loss of consciousness [None]
  - Thirst [None]
  - Pollakiuria [None]
  - Contusion [None]
  - Arthralgia [None]
  - Joint swelling [None]
  - Asthma [None]
  - Bronchitis [None]
  - Condition aggravated [None]
  - Muscle disorder [None]
  - Nervous system disorder [None]
  - Seasonal allergy [None]
  - House dust allergy [None]
